FAERS Safety Report 5736320-8 (Version None)
Quarter: 2008Q2

REPORT INFORMATION
  Report Type: 
  Country: None (occurrence: None)
  Receive Date: 20080508
  Receipt Date: 20080505
  Transmission Date: 20081010
  Serious: Yes (Hospitalization)
  Sender: FDA-Public Use
  Company Number: 2006-02248

PATIENT
  Age: 42 Year
  Sex: Female

DRUGS (5)
  1. VELCADE [Suspect]
     Indication: MULTIPLE MYELOMA
     Dosage: 1.30 MG/M2, INTRAVENOUS
     Route: 042
     Dates: start: 20060731, end: 20060812
  2. DEXAMETHASONE TAB [Suspect]
     Indication: MULTIPLE MYELOMA
     Dates: start: 20060814, end: 20060817
  3. CYCLOPHOSPHAMIDE [Suspect]
     Indication: MULTIPLE MYELOMA
     Dates: start: 20060814, end: 20060817
  4. ETOPOSIDE [Suspect]
     Indication: MULTIPLE MYELOMA
     Dates: start: 20060814, end: 20060817
  5. GRANOCYTE(LENOGRASTIM) [Suspect]
     Indication: DRUG USE FOR UNKNOWN INDICATION
     Dates: start: 20060818, end: 20060823

REACTIONS (4)
  - COLITIS [None]
  - FEBRILE BONE MARROW APLASIA [None]
  - HYPERKALAEMIA [None]
  - RENAL FAILURE [None]
